FAERS Safety Report 4282697-2 (Version None)
Quarter: 2004Q1

REPORT INFORMATION
  Report Type: 
  Country: None (occurrence: None)
  Receive Date: 20040130
  Receipt Date: 20030311
  Transmission Date: 20041129
  Serious: No
  Sender: FDA-Public Use
  Company Number: US-BRISTOL-MYERS SQUIBB COMPANY-12208278

PATIENT
  Age: 42 Year
  Sex: Male
  Weight: 75 kg

DRUGS (6)
  1. SERZONE [Suspect]
     Indication: DEPRESSION
     Route: 048
     Dates: start: 20030304
  2. SOMA [Concomitant]
  3. NORCO [Concomitant]
  4. XANAX [Concomitant]
  5. VALIUM [Concomitant]
  6. PANRITIS FORTE [Concomitant]

REACTIONS (4)
  - DEPRESSION [None]
  - HYPOAESTHESIA [None]
  - INSOMNIA [None]
  - PARAESTHESIA [None]
